FAERS Safety Report 9611349 (Version 1)
Quarter: 2013Q4

REPORT INFORMATION
  Report Type: Spontaneous
  Country: US (occurrence: US)
  Receive Date: 20131010
  Receipt Date: 20131010
  Transmission Date: 20140711
  Serious: No
  Sender: FDA-Public Use
  Company Number: US-BIOGENIDEC-2013BI096304

PATIENT
  Sex: Female

DRUGS (1)
  1. TYSABRI [Suspect]
     Indication: MULTIPLE SCLEROSIS
     Route: 042
     Dates: start: 20130614, end: 20130817

REACTIONS (3)
  - Weight decreased [Not Recovered/Not Resolved]
  - Stress [Not Recovered/Not Resolved]
  - Suicidal ideation [Not Recovered/Not Resolved]
